FAERS Safety Report 6146317-4 (Version None)
Quarter: 2009Q2

REPORT INFORMATION
  Report Type: 
  Country: None (occurrence: None)
  Receive Date: 20090403
  Receipt Date: 20090403
  Transmission Date: 20091009
  Serious: Yes (Hospitalization)
  Sender: FDA-Public Use
  Company Number: None

PATIENT
  Age: 75 Year
  Sex: Male

DRUGS (3)
  1. RISPERIDONE [Suspect]
     Indication: AGITATION
     Dosage: 7.5 MG ONCE PO
     Route: 048
     Dates: start: 20081231, end: 20081231
  2. RISPERIDONE [Suspect]
     Indication: SCHIZOPHRENIA, PARANOID TYPE
     Dosage: 7.5 MG ONCE PO
     Route: 048
     Dates: start: 20081231, end: 20081231
  3. LORAZEPAM [Suspect]
     Dosage: 2 MG ONCE PO
     Route: 048
     Dates: start: 20081231, end: 20081231

REACTIONS (2)
  - BRADYCARDIA [None]
  - HYPOTENSION [None]
